FAERS Safety Report 5717982-8 (Version None)
Quarter: 2008Q2

REPORT INFORMATION
  Report Type: 
  Country: None (occurrence: None)
  Receive Date: 20080425
  Receipt Date: 20080416
  Transmission Date: 20081010
  Serious: Yes (Other)
  Sender: FDA-Public Use
  Company Number: B0359592A

PATIENT
  Sex: Female

DRUGS (3)
  1. SEROXAT [Suspect]
     Indication: STRESS
     Dosage: 30MG PER DAY
     Route: 065
     Dates: start: 20010820
  2. PAROXETINE HCL [Suspect]
     Dates: start: 20070301
  3. ZOPICLONE [Suspect]
     Indication: STRESS
     Dosage: 7.5MG PER DAY
     Route: 065

REACTIONS (13)
  - AGITATION [None]
  - ANOREXIA [None]
  - CONFUSIONAL STATE [None]
  - DISTURBANCE IN ATTENTION [None]
  - DIZZINESS [None]
  - DRUG WITHDRAWAL SYNDROME [None]
  - EARLY MORNING AWAKENING [None]
  - FATIGUE [None]
  - HALLUCINATION, AUDITORY [None]
  - INJURY [None]
  - MEMORY IMPAIRMENT [None]
  - OVERDOSE [None]
  - SUICIDE ATTEMPT [None]
